FAERS Safety Report 4380061-9 (Version None)
Quarter: 2004Q2

REPORT INFORMATION
  Report Type: 
  Country: None (occurrence: None)
  Receive Date: 20040614
  Receipt Date: 20040324
  Transmission Date: 20050107
  Serious: No
  Sender: FDA-Public Use
  Company Number: M03-341-081

PATIENT
  Age: 69 Year
  Sex: Male
  Weight: 102 kg

DRUGS (5)
  1. VELCADE [Suspect]
     Indication: MULTIPLE MYELOMA
     Dosage: 2.6 MG BIW: INTRAVENOUS BOLUS
     Route: 040
     Dates: start: 20030616, end: 20031120
  2. DURAGESIC [Concomitant]
  3. NEUPOGEN [Concomitant]
  4. PROCRIT (ERYTHROPOIETIN) [Concomitant]
  5. ZOMETA [Concomitant]

REACTIONS (1)
  - INJECTION SITE BURNING [None]
